FAERS Safety Report 18410341 (Version 3)
Quarter: 2020Q4

REPORT INFORMATION
  Report Type: Report from Study
  Country: BR (occurrence: BR)
  Receive Date: 20201021
  Receipt Date: 20201104
  Transmission Date: 20210114
  Serious: Yes (Death, Hospitalization)
  Sender: FDA-Public Use
  Company Number: BR-ROCHE-2696454

PATIENT
  Age: 57 Year
  Sex: Female
  Weight: 64 kg

DRUGS (22)
  1. FLUCONAZOL [Concomitant]
     Active Substance: FLUCONAZOLE
     Indication: SYSTEMIC INFLAMMATORY RESPONSE SYNDROME
     Dates: start: 20201008, end: 20201008
  2. ONDANSETRON [Concomitant]
     Active Substance: ONDANSETRON
     Indication: NAUSEA
     Dates: start: 2017
  3. INSULIN [Concomitant]
     Active Substance: INSULIN NOS
     Indication: TYPE 2 DIABETES MELLITUS
     Dates: start: 20200204
  4. NPH INSULIN [Concomitant]
     Active Substance: INSULIN BEEF
     Indication: TYPE 2 DIABETES MELLITUS
     Dates: start: 20200204
  5. LORAZEPAM. [Concomitant]
     Active Substance: LORAZEPAM
     Indication: INSOMNIA
     Dates: start: 2017
  6. LACTULOSE. [Concomitant]
     Active Substance: LACTULOSE
     Dates: start: 2017
  7. IPRATROPIUM [Concomitant]
     Active Substance: IPRATROPIUM
     Indication: DYSPNOEA
     Dates: start: 202002
  8. PIPERACILLIN/TAZOBACTAM [Concomitant]
     Active Substance: PIPERACILLIN SODIUM\TAZOBACTAM SODIUM
     Dates: start: 20200911, end: 20200923
  9. METHYLPREDNISOLONE. [Concomitant]
     Active Substance: METHYLPREDNISOLONE
     Indication: IMMUNE-MEDIATED HEPATITIS
     Dates: start: 20200925, end: 20201010
  10. MEROPENEM. [Concomitant]
     Active Substance: MEROPENEM
     Indication: NEUTROPENIA
     Dates: start: 20200924
  11. PIPERACILLIN/TAZOBACTAM [Concomitant]
     Active Substance: PIPERACILLIN SODIUM\TAZOBACTAM SODIUM
     Indication: NEUTROPENIA
     Dates: start: 20200930, end: 20201004
  12. VANCOMICINA [Concomitant]
     Active Substance: VANCOMYCIN
     Indication: SYSTEMIC INFLAMMATORY RESPONSE SYNDROME
     Dates: start: 20200913
  13. ATEZOLIZUMAB. [Suspect]
     Active Substance: ATEZOLIZUMAB
     Indication: METASTATIC NEOPLASM
     Dosage: START DATE OF MOST RECENT DOSE OF STUDY DRUG PRIOR TO AE 31-AUG-2020 9:25 AM TO  10:25 AM
     Route: 041
     Dates: start: 20200831
  14. PREDNISONE. [Concomitant]
     Active Substance: PREDNISONE
     Indication: IMMUNE-MEDIATED HEPATITIS
     Dates: start: 20200928, end: 20201002
  15. ENOXAPARIN [Concomitant]
     Active Substance: ENOXAPARIN
     Indication: VENA CAVA THROMBOSIS
     Dates: start: 2019
  16. RO7122290 (FAP-4-1BBL MAB) [Suspect]
     Active Substance: INVESTIGATIONAL PRODUCT
     Indication: METASTATIC NEOPLASM
     Dosage: MOST RECENT DOSE RECEIVED ON 08/SEP/2020, TOTAL VOLUME 50 ML, FROM 10:13 AM TO 11:13 AM PRIOR TO AE/
     Route: 041
     Dates: start: 20200831
  17. FLUCONAZOL [Concomitant]
     Active Substance: FLUCONAZOLE
     Dates: start: 20201009
  18. GLICAZIDA [Concomitant]
     Active Substance: GLICLAZIDE
     Indication: TYPE 2 DIABETES MELLITUS
     Dates: start: 2007
  19. GABAPENTINA [Concomitant]
     Active Substance: GABAPENTIN
     Indication: CHEST PAIN
     Dates: start: 2017
  20. MORPHINE [Concomitant]
     Active Substance: MORPHINE
     Indication: CHEST PAIN
     Dates: start: 2017
  21. PIPERACILLIN/TAZOBACTAM [Concomitant]
     Active Substance: PIPERACILLIN SODIUM\TAZOBACTAM SODIUM
     Indication: SYSTEMIC INFLAMMATORY RESPONSE SYNDROME
     Dates: start: 20201005, end: 20201006
  22. FENTANYL TRANSDERMAL SYSTEM [Concomitant]
     Active Substance: FENTANYL
     Indication: CHEST PAIN
     Dates: start: 2017

REACTIONS (1)
  - COVID-19 [Fatal]

NARRATIVE: CASE EVENT DATE: 20201010
